FAERS Safety Report 7517967-5 (Version None)
Quarter: 2011Q2

REPORT INFORMATION
  Report Type: 
  Country: None (occurrence: None)
  Receive Date: 20110527
  Receipt Date: 20110527
  Transmission Date: 20111010
  Serious: Yes (Hospitalization)
  Sender: FDA-Public Use
  Company Number: None

PATIENT
  Sex: Female
  Weight: 55.5 kg

DRUGS (2)
  1. OXALIPLATIN (ELOXATIN) [Suspect]
     Dosage: 82 MG
  2. BEVACIZUMAB (RHUMAB VEFG) [Suspect]
     Dosage: 315.5 MG

REACTIONS (1)
  - PERIPHERAL SENSORY NEUROPATHY [None]
